FAERS Safety Report 5536966-6 (Version None)
Quarter: 2007Q4

REPORT INFORMATION
  Report Type: 
  Country: None (occurrence: None)
  Receive Date: 20071204
  Receipt Date: 20071126
  Transmission Date: 20080405
  Serious: Yes (Death)
  Sender: FDA-Public Use
  Company Number: 2007-168357-NL

PATIENT
  Sex: Female

DRUGS (3)
  1. MIRTAZAPINE [Suspect]
     Dosage: TRANSPLACENTAL
     Route: 064
     Dates: start: 20060318, end: 20060327
  2. CITALOPRAM HYDROBROMIDE [Suspect]
     Dosage: TRANSPLACENTAL
     Route: 064
     Dates: start: 20050101
  3. CLONAZEPAM [Suspect]
     Dosage: TRANSPLACENTAL
     Route: 064
     Dates: start: 20050101, end: 20060317

REACTIONS (4)
  - DEATH NEONATAL [None]
  - DRUG EXPOSURE DURING PREGNANCY [None]
  - PREMATURE RUPTURE OF MEMBRANES [None]
  - SEPSIS NEONATAL [None]
